FAERS Safety Report 16906853 (Version 4)
Quarter: 2020Q1

REPORT INFORMATION
  Report Type: Report from Study
  Country: DE (occurrence: DE)
  Receive Date: 20191011
  Receipt Date: 20200127
  Transmission Date: 20200409
  Serious: Yes (Other)
  Sender: FDA-Public Use
  Company Number: DE-TEVA-2019-DE-1119954

PATIENT
  Age: 75 Year
  Sex: Female
  Weight: 67 kg

DRUGS (3)
  1. APIXABAN [Suspect]
     Active Substance: APIXABAN
     Dosage: 40 MILLIGRAM DAILY; 10 MILLIGRAM, BID
     Route: 048
     Dates: start: 20170919
  2. APIXABAN [Suspect]
     Active Substance: APIXABAN
     Dosage: 20 MILLIGRAM DAILY; 5 MILLIGRAM, BID
     Route: 048
  3. IBUPROFEN. [Suspect]
     Active Substance: IBUPROFEN
     Dosage: 1 DF= 600 (UNITS NOT PROVIDED)
     Route: 065

REACTIONS (3)
  - Conjunctival haemorrhage [Unknown]
  - Intentional product use issue [Unknown]
  - Arthralgia [Unknown]

NARRATIVE: CASE EVENT DATE: 20180815
